FAERS Safety Report 10163047 (Version 2)
Quarter: 2014Q2

REPORT INFORMATION
  Report Type: Spontaneous
  Country: TR (occurrence: TR)
  Receive Date: 20140509
  Receipt Date: 20140509
  Transmission Date: 20141212
  Serious: Yes (Other)
  Sender: FDA-Public Use
  Company Number: PHHY2014TR049251

PATIENT
  Age: 17 Year
  Sex: Female

DRUGS (2)
  1. RISPERIDONE [Suspect]
     Dosage: 1 MG, DAILY
  2. RISPERIDONE [Suspect]
     Dosage: 19 MG, UNK

REACTIONS (12)
  - Suicide attempt [Unknown]
  - Speech disorder [Recovering/Resolving]
  - Dystonia [Recovering/Resolving]
  - Somnolence [Recovering/Resolving]
  - Swollen tongue [Recovering/Resolving]
  - Dyspnoea [Recovering/Resolving]
  - Tongue oedema [Recovering/Resolving]
  - Stridor [Recovering/Resolving]
  - Sinus tachycardia [Recovering/Resolving]
  - Dysphagia [Recovering/Resolving]
  - Muscle contractions involuntary [Recovering/Resolving]
  - Intentional overdose [Unknown]
